FAERS Safety Report 14119102 (Version 1)
Quarter: 2017Q4

REPORT INFORMATION
  Report Type: Spontaneous
  Country: AT (occurrence: AT)
  Receive Date: 20171024
  Receipt Date: 20171024
  Transmission Date: 20180321
  Serious: Yes (Other)
  Sender: FDA-Public Use
  Company Number: AT-AMGEN-AUTSP2017156882

PATIENT
  Sex: Female

DRUGS (13)
  1. REPATHA [Suspect]
     Active Substance: EVOLOCUMAB
     Indication: HYPERCHOLESTEROLAEMIA
  2. OLEOVIT D3 [Concomitant]
     Active Substance: CHOLECALCIFEROL
     Indication: VITAMIN D DEFICIENCY
     Dosage: 70 DROPS, QWK
  3. REPATHA [Suspect]
     Active Substance: EVOLOCUMAB
     Indication: HYPERLIPIDAEMIA
  4. PRALUENT [Concomitant]
     Active Substance: ALIROCUMAB
     Dosage: UNK
     Dates: start: 201705
  5. LASIX [Concomitant]
     Active Substance: FUROSEMIDE
     Dosage: 40 UNK, QOD
  6. REPATHA [Suspect]
     Active Substance: EVOLOCUMAB
     Indication: TYPE IIA HYPERLIPIDAEMIA
     Dosage: UNK UNK, Q2WK
     Route: 058
     Dates: start: 201611, end: 201705
  7. CONCOR [Concomitant]
     Active Substance: BISOPROLOL FUMARATE
     Dosage: 5 MG, QD (IN NIGHT)
  8. LASIX [Concomitant]
     Active Substance: FUROSEMIDE
     Dosage: HALF, QD
  9. PROCORALAN [Concomitant]
     Active Substance: IVABRADINE
     Indication: TACHYCARDIA
  10. ITERIUM [Concomitant]
     Active Substance: RILMENIDINE
     Dosage: 1 MG, QD (IN NIGHT)
  11. FLUDEX (INDAPAMIDE) [Concomitant]
     Active Substance: INDAPAMIDE
     Dosage: 1.5 UNK, QD (IN MORNING)
  12. LASIX [Concomitant]
     Active Substance: FUROSEMIDE
     Indication: FLUID RETENTION
     Dosage: 40 UNK, QWK
  13. LASIX [Concomitant]
     Active Substance: FUROSEMIDE
     Dosage: 40 UNK, Q2WK

REACTIONS (7)
  - Skin wrinkling [Unknown]
  - Blood cholesterol increased [Unknown]
  - Depression [Unknown]
  - Drug intolerance [Unknown]
  - Varicose vein [Unknown]
  - Insomnia [Not Recovered/Not Resolved]
  - Low density lipoprotein increased [Unknown]

NARRATIVE: CASE EVENT DATE: 2017
